FAERS Safety Report 6311425-1 (Version None)
Quarter: 2009Q3

REPORT INFORMATION
  Report Type: 
  Country: None (occurrence: None)
  Receive Date: 20090817
  Receipt Date: 20090813
  Transmission Date: 20100115
  Serious: Yes (Other)
  Sender: FDA-Public Use
  Company Number: US-PFIZER INC-2009234641

PATIENT

DRUGS (1)
  1. ZYVOX [Suspect]
     Dates: start: 20090101, end: 20090101

REACTIONS (1)
  - THROMBOCYTOPENIA [None]
